FAERS Safety Report 10391932 (Version 3)
Quarter: 2014Q3

REPORT INFORMATION
  Report Type: Spontaneous
  Country: IN (occurrence: IN)
  Receive Date: 20140819
  Receipt Date: 20140916
  Transmission Date: 20150326
  Serious: Yes (Hospitalization, Other)
  Sender: FDA-Public Use
  Company Number: PHHY2014IN096578

PATIENT
  Age: 33 Year
  Sex: Male

DRUGS (9)
  1. WYSOLONE [Concomitant]
     Dosage: 20 MG, QD (AT 9AM)
  2. SEPTRAN [Concomitant]
     Dosage: 450 MG, QD (TILL 07 FEB 2015)
  3. PROGRAF [Concomitant]
     Active Substance: TACROLIMUS\TACROLIMUS ANHYDROUS
     Dosage: 2.5 UNK, BID (7AM, 7PM), TO CONTINUE
  4. AMLONG [Concomitant]
     Dosage: 2.5 MG, QD
  5. ARKAMIN [Concomitant]
     Dosage: 0.1 MG, BID
  6. PAN [Concomitant]
     Dosage: 40 MG, QD (FOR 8 DAYS)
  7. CELLCEPT [Concomitant]
     Active Substance: MYCOPHENOLATE MOFETIL\MYCOPHENOLATE MOFETIL HYDROCHLORIDE
     Dosage: 500 MG, TID (8AM, 3PM, 10PM), TO CONTINUE
  8. SIMULECT [Suspect]
     Active Substance: BASILIXIMAB
     Indication: RENAL TRANSPLANT
     Dosage: 20 MG, UNK
     Dates: start: 20140724
  9. FAROPENEM [Concomitant]
     Active Substance: FAROPENEM
     Dosage: 200 MG, BID (FOR  8 DAYS)

REACTIONS (22)
  - Blood glucose increased [Recovered/Resolved]
  - Neutrophil count increased [Unknown]
  - Urinary tract infection [Unknown]
  - Blood magnesium increased [Unknown]
  - Blood phosphorus decreased [Recovered/Resolved]
  - Eosinophil count decreased [Recovered/Resolved]
  - Prothrombin time prolonged [Not Recovered/Not Resolved]
  - Red blood cell count decreased [Not Recovered/Not Resolved]
  - Haemoglobin decreased [Not Recovered/Not Resolved]
  - Blood bicarbonate abnormal [Recovered/Resolved]
  - C-reactive protein increased [Not Recovered/Not Resolved]
  - Kidney transplant rejection [Recovered/Resolved]
  - Blood sodium decreased [Recovered/Resolved]
  - Heart rate increased [Not Recovered/Not Resolved]
  - Blood albumin decreased [Unknown]
  - Haematocrit decreased [Unknown]
  - Monocyte count increased [Not Recovered/Not Resolved]
  - Urinary tract infection enterococcal [Unknown]
  - Blood calcium decreased [Unknown]
  - Blood uric acid decreased [Not Recovered/Not Resolved]
  - Lymphocyte count decreased [Unknown]
  - Protein total decreased [Recovered/Resolved]

NARRATIVE: CASE EVENT DATE: 20140724
